FAERS Safety Report 17703265 (Version 1)
Quarter: 2020Q2

REPORT INFORMATION
  Report Type: Spontaneous
  Country: ES (occurrence: ES)
  Receive Date: 20200424
  Receipt Date: 20200424
  Transmission Date: 20200714
  Serious: Yes (Death)
  Sender: FDA-Public Use
  Company Number: ES-TEVA-2020-ES-1226288

PATIENT
  Age: 65 Year
  Sex: Female

DRUGS (4)
  1. HIDROXICLOROQUINA SULFATO (2143SU) [Suspect]
     Active Substance: HYDROXYCHLOROQUINE SULFATE
     Indication: CORONAVIRUS INFECTION
     Dosage: 200 MG
     Route: 048
     Dates: start: 20200331, end: 20200402
  2. CEFTRIAXONA (501A) [Concomitant]
     Active Substance: CEFTRIAXONE
     Indication: PNEUMONIA
     Dosage: 1 GRAM
     Route: 042
     Dates: start: 20200330, end: 20200402
  3. AZITROMICINA (7019A) [Interacting]
     Active Substance: AZITHROMYCIN
     Indication: CORONAVIRUS INFECTION
     Dosage: 500 MG
     Route: 048
     Dates: start: 20200330, end: 20200401
  4. TOCILIZUMAB (8289A) [Concomitant]
     Active Substance: TOCILIZUMAB
     Indication: CORONAVIRUS INFECTION
     Route: 042
     Dates: start: 20200331, end: 20200331

REACTIONS (3)
  - Drug interaction [Unknown]
  - Cardiogenic shock [Fatal]
  - Tachyarrhythmia [Fatal]

NARRATIVE: CASE EVENT DATE: 20200402
